FAERS Safety Report 7679770-5 (Version None)
Quarter: 2011Q3

REPORT INFORMATION
  Report Type: 
  Country: None (occurrence: None)
  Receive Date: 20110812
  Receipt Date: 20110802
  Transmission Date: 20111222
  Serious: Yes (Hospitalization)
  Sender: FDA-Public Use
  Company Number: CA-JNJFOC-20110610069

PATIENT
  Sex: Female
  Weight: 50.1 kg

DRUGS (4)
  1. HYZAAR [Concomitant]
  2. DESOGESTREL AND ETHINYL ESTRADIOL [Concomitant]
  3. REMICADE [Suspect]
     Indication: CROHN'S DISEASE
     Route: 042
     Dates: start: 20080330
  4. BIRTH CONTROL PILL [Concomitant]

REACTIONS (1)
  - ERYTHEMA NODOSUM [None]
